FAERS Safety Report 7170102-8 (Version None)
Quarter: 2010Q4

REPORT INFORMATION
  Report Type: 
  Country: None (occurrence: None)
  Receive Date: 20101203
  Receipt Date: 20101129
  Transmission Date: 20110411
  Serious: Yes (Death)
  Sender: FDA-Public Use
  Company Number: 2010006145

PATIENT
  Age: 96 Year
  Sex: Female

DRUGS (2)
  1. FENTANYL [Suspect]
     Dosage: 100 MCG (100 MCG, 1 IN 1 D), BU
     Route: 002
     Dates: start: 20101124, end: 20101126
  2. DURAGESIC-100 [Suspect]
     Dosage: 25 MCG, TRANSDERMAL
     Route: 062
     Dates: end: 20101126

REACTIONS (2)
  - HYPOPHAGIA [None]
  - MALAISE [None]
